FAERS Safety Report 16642578 (Version 2)
Quarter: 2019Q3

REPORT INFORMATION
  Report Type: Report from Study
  Country: None (occurrence: US)
  Receive Date: 20190729
  Receipt Date: 20190808
  Transmission Date: 20191004
  Serious: Yes (Other)
  Sender: FDA-Public Use
  Company Number: US-ABBVIE-19K-163-2868009-00

PATIENT
  Sex: Male
  Weight: 73.09 kg

DRUGS (5)
  1. LEXAPRO [Concomitant]
     Active Substance: ESCITALOPRAM OXALATE
     Indication: DEPRESSION
  2. CENTRUM [Concomitant]
     Active Substance: VITAMINS
     Indication: VITAMIN SUPPLEMENTATION
  3. HUMIRA [Suspect]
     Active Substance: ADALIMUMAB
     Indication: RHEUMATOID ARTHRITIS
     Route: 058
     Dates: start: 201810
  4. LEXAPRO [Concomitant]
     Active Substance: ESCITALOPRAM OXALATE
     Indication: ANXIETY
  5. NORCO [Concomitant]
     Active Substance: ACETAMINOPHEN\HYDROCODONE BITARTRATE
     Indication: ANALGESIC THERAPY

REACTIONS (7)
  - Joint swelling [Not Recovered/Not Resolved]
  - Weight decreased [Not Recovered/Not Resolved]
  - Skin atrophy [Not Recovered/Not Resolved]
  - Fibromyalgia [Not Recovered/Not Resolved]
  - Osteoarthritis [Not Recovered/Not Resolved]
  - Haemorrhagic diathesis [Not Recovered/Not Resolved]
  - Gastric disorder [Unknown]

NARRATIVE: CASE EVENT DATE: 2019
